FAERS Safety Report 6334446-1 (Version None)
Quarter: 2009Q3

REPORT INFORMATION
  Report Type: 
  Country: None (occurrence: None)
  Receive Date: 20090831
  Receipt Date: 20070810
  Transmission Date: 20100115
  Serious: Yes (Hospitalization, Other)
  Sender: FDA-Public Use
  Company Number: US-ASTRAZENECA-2006UW12056

PATIENT
  Age: 17165 Day
  Sex: Male
  Weight: 97.5 kg

DRUGS (11)
  1. SEROQUEL [Suspect]
     Indication: BIPOLAR DISORDER
     Dosage: STRENGTH 25MG, 100MG, 150MG, 500MG  DOSE 25MG-500MG
     Route: 048
     Dates: start: 19990503
  2. SEROQUEL [Suspect]
     Indication: DEPRESSION
     Dosage: STRENGTH 25MG, 100MG, 150MG, 500MG  DOSE 25MG-500MG
     Route: 048
     Dates: start: 19990503
  3. ZYPREXA [Suspect]
  4. RISPERDAL [Concomitant]
     Dates: start: 19981202
  5. TRILAFON [Concomitant]
  6. CLOZARIL [Concomitant]
  7. HALDOL [Concomitant]
  8. THORAZINE [Concomitant]
  9. DEPAKOTE [Concomitant]
     Dosage: STRENGTH 1000MG, 2000MG  DOSE-2000 MG DAILY
     Route: 048
     Dates: start: 20021113
  10. REMERON [Concomitant]
     Dosage: STRENGTH 15 MG, 30 MG  DOSE 30 MG DAILY
     Route: 048
     Dates: start: 19981202
  11. PRILOSEC [Concomitant]
     Dosage: STRNGTH 10 MG, 20 MG
     Dates: start: 20010417

REACTIONS (5)
  - DIABETES MELLITUS [None]
  - DIABETIC COMPLICATION [None]
  - NEUROPATHY PERIPHERAL [None]
  - TYPE 1 DIABETES MELLITUS [None]
  - TYPE 2 DIABETES MELLITUS [None]
